FAERS Safety Report 5831440-1 (Version None)
Quarter: 2008Q3

REPORT INFORMATION
  Report Type: 
  Country: None (occurrence: None)
  Receive Date: 20080801
  Receipt Date: 20080722
  Transmission Date: 20090109
  Serious: Yes (Hospitalization)
  Sender: FDA-Public Use
  Company Number: ES-PFIZER INC-2008060853

PATIENT
  Age: 55 Year
  Sex: Male

DRUGS (6)
  1. ALDACTONE [Suspect]
     Indication: HEPATIC CIRRHOSIS
     Route: 048
  2. FUROSEMIDE [Interacting]
     Indication: HEPATIC CIRRHOSIS
     Route: 048
  3. ATARAX [Concomitant]
     Route: 048
  4. DUPHALAC [Concomitant]
     Indication: HEPATIC CIRRHOSIS
     Route: 048
  5. OPTOVITE B12 [Concomitant]
     Indication: ANAEMIA
     Route: 030
  6. XALATAN [Concomitant]

REACTIONS (2)
  - DRUG INTERACTION [None]
  - HEPATIC ENCEPHALOPATHY [None]
